FAERS Safety Report 8455573-9 (Version None)
Quarter: 2012Q2

REPORT INFORMATION
  Report Type: 
  Country: None (occurrence: None)
  Receive Date: 20120614
  Receipt Date: 20120606
  Transmission Date: 20120825
  Serious: Yes (Death, Other)
  Sender: FDA-Public Use
  Company Number: US-2012-10685

PATIENT
  Age: 6 Month
  Sex: Male

DRUGS (4)
  1. CYCLOPHOSPHAMIDE [Suspect]
     Indication: THERAPEUTIC PROCEDURE
  2. BUSULFAN [Suspect]
     Indication: THERAPEUTIC PROCEDURE
  3. FLUDARABINE PHOSPHATE [Suspect]
     Indication: THERAPEUTIC PROCEDURE
  4. MELPHALAN HYDROCHLORIDE [Suspect]
     Indication: THERAPEUTIC PROCEDURE

REACTIONS (7)
  - HUMAN HERPESVIRUS 6 INFECTION [None]
  - RESPIRATORY FAILURE [None]
  - PNEUMONIA [None]
  - ENCEPHALITIS [None]
  - ENTEROBACTER INFECTION [None]
  - RENAL FAILURE [None]
  - KLEBSIELLA INFECTION [None]
